FAERS Safety Report 9449719 (Version 2)
Quarter: 2014Q1

REPORT INFORMATION
  Report Type: Spontaneous
  Country: IT (occurrence: IT)
  Receive Date: 20130809
  Receipt Date: 20140121
  Transmission Date: 20141002
  Serious: Yes (Other)
  Sender: FDA-Public Use
  Company Number: IT-ACCORD-018891

PATIENT
  Age: 51 Year
  Sex: Male
  Weight: 65 kg

DRUGS (6)
  1. GEMCITABINE/GEMCITABINE HYDROCHLORIDE [Suspect]
     Indication: LUNG ADENOCARCINOMA
     Route: 042
     Dates: start: 20121214, end: 20130111
  2. CISPLATINO HOSPIRA [Suspect]
     Indication: LUNG ADENOCARCINOMA
     Route: 042
     Dates: start: 20121214, end: 20130111
  3. ONDANSETRON HIKAMA [Concomitant]
  4. RANIDIL [Concomitant]
  5. LASIX [Concomitant]
     Route: 042
  6. SOLDESAM [Concomitant]
     Route: 042

REACTIONS (3)
  - Abdominal pain [Unknown]
  - Pyrexia [Unknown]
  - Chest pain [Unknown]
